FAERS Safety Report 12651831 (Version 1)
Quarter: 2016Q3

REPORT INFORMATION
  Report Type: Spontaneous
  Country: US (occurrence: US)
  Receive Date: 20160815
  Receipt Date: 20160815
  Transmission Date: 20161109
  Serious: No
  Sender: FDA-Public Use
  Company Number: US-BEH-2016072458

PATIENT
  Sex: Male
  Weight: 49.89 kg

DRUGS (6)
  1. HIZENTRA [Suspect]
     Active Substance: HUMAN IMMUNOGLOBULIN G
     Dosage: 6 G, QW
     Route: 058
     Dates: start: 20110830
  2. EPIPEN [Concomitant]
     Active Substance: EPINEPHRINE
  3. HIZENTRA [Suspect]
     Active Substance: HUMAN IMMUNOGLOBULIN G
     Indication: HYPOGAMMAGLOBULINAEMIA
     Dosage: UNK
     Route: 058
  4. LIDOCAINE/PRILOCAINE [Concomitant]
     Active Substance: LIDOCAINE\PRILOCAINE
  5. HIZENTRA [Suspect]
     Active Substance: HUMAN IMMUNOGLOBULIN G
     Dosage: UNK
     Route: 058
  6. DIPHENHYDRAMINE. [Concomitant]
     Active Substance: DIPHENHYDRAMINE

REACTIONS (1)
  - Nasopharyngitis [Unknown]
